FAERS Safety Report 20773060 (Version 1)
Quarter: 2022Q2

REPORT INFORMATION
  Report Type: Spontaneous
  Country: US (occurrence: None)
  Receive Date: 20220429
  Receipt Date: 20220429
  Transmission Date: 20220720
  Serious: Yes (Death)
  Sender: FDA-Public Use
  Company Number: None

PATIENT
  Sex: Male

DRUGS (5)
  1. VIGABATRIN [Suspect]
     Active Substance: VIGABATRIN
     Indication: Epilepsy
     Dosage: FREQUENCY : TWICE A DAY;?
     Route: 048
     Dates: start: 20210113
  2. DIAZEPAM [Concomitant]
     Active Substance: DIAZEPAM
  3. LEVETIRACETA TAB [Concomitant]
     Active Substance: LEVETIRACETAM
  4. TRIHEXYPHEN TAB [Concomitant]
  5. VIGABATRIN PAK [Concomitant]

REACTIONS (1)
  - Death [None]
